FAERS Safety Report 7065630-X (Version None)
Quarter: 2010Q4

REPORT INFORMATION
  Report Type: 
  Country: None (occurrence: None)
  Receive Date: 20101022
  Receipt Date: 20101022
  Transmission Date: 20110411
  Serious: Yes (Other)
  Sender: FDA-Public Use
  Company Number: None

PATIENT
  Age: 60 Year
  Sex: Female
  Weight: 52.1637 kg

DRUGS (2)
  1. OXALIPLATIN [Suspect]
     Indication: COLON CANCER
     Dosage: 110 MG Q 2WKS IV
     Route: 042
     Dates: start: 20100628, end: 20101018
  2. OXALIPLATIN [Suspect]

REACTIONS (7)
  - BLOOD PRESSURE DECREASED [None]
  - FEELING ABNORMAL [None]
  - FEELING COLD [None]
  - INFUSION RELATED REACTION [None]
  - LETHARGY [None]
  - NAUSEA [None]
  - WHEEZING [None]
